FAERS Safety Report 4605030-2 (Version None)
Quarter: 2005Q1

REPORT INFORMATION
  Report Type: 
  Country: None (occurrence: None)
  Receive Date: 20050311
  Receipt Date: 20041125
  Transmission Date: 20050727
  Serious: Yes (Death, Disabling)
  Sender: FDA-Public Use
  Company Number: 200413666JP

PATIENT
  Age: 71 Year
  Sex: Female
  Weight: 55 kg

DRUGS (6)
  1. AMARYL [Suspect]
     Indication: DIABETES MELLITUS
     Route: 048
     Dates: end: 20040616
  2. GLUCOBAY [Suspect]
     Indication: DIABETES MELLITUS
     Route: 048
     Dates: end: 20040616
  3. GASTER [Concomitant]
     Route: 048
     Dates: end: 20040616
  4. URSO 250 [Concomitant]
     Indication: AUTOIMMUNE HEPATITIS
     Route: 048
     Dates: end: 20040616
  5. NU-LOTAN [Concomitant]
     Indication: HYPERTENSION
     Route: 048
     Dates: end: 20040616
  6. NORVASC [Concomitant]
     Indication: HYPERTENSION
     Route: 048
     Dates: end: 20040616

REACTIONS (2)
  - HYPOGLYCAEMIC COMA [None]
  - HYPOXIC ENCEPHALOPATHY [None]
